FAERS Safety Report 6153176-2 (Version None)
Quarter: 2009Q2

REPORT INFORMATION
  Report Type: 
  Country: None (occurrence: None)
  Receive Date: 20090413
  Receipt Date: 20090402
  Transmission Date: 20091009
  Serious: Yes (Hospitalization, Other)
  Sender: FDA-Public Use
  Company Number: US-ELI_LILLY_AND_COMPANY-US200902002178

PATIENT
  Age: 84 Year
  Sex: Female
  Weight: 41.27 kg

DRUGS (10)
  1. FORTEO [Suspect]
     Indication: OSTEOPOROSIS
     Dates: start: 20070101, end: 20090117
  2. FORTEO [Suspect]
     Dates: start: 20090101
  3. AMIODARONE HCL [Concomitant]
  4. AZOR [Concomitant]
  5. INDAPAMIDE [Concomitant]
  6. CLONIDINE [Concomitant]
  7. RAZADYNE [Concomitant]
  8. COUMADIN [Concomitant]
  9. ZYVOX [Concomitant]
  10. MINOCYCLINE HCL [Concomitant]

REACTIONS (3)
  - CONSTIPATION [None]
  - PANCREATITIS [None]
  - STAPHYLOCOCCAL INFECTION [None]
